FAERS Safety Report 24815271 (Version 2)
Quarter: 2025Q3

REPORT INFORMATION
  Report Type: Report from Study
  Country: US (occurrence: US)
  Receive Date: 20250107
  Receipt Date: 20250803
  Transmission Date: 20251021
  Serious: Yes (Other)
  Sender: ALEXION PHARMACEUTICALS
  Company Number: US-AstraZeneca-CH-00776752A

PATIENT
  Age: 79 Year
  Sex: Female

DRUGS (2)
  1. ULTOMIRIS [Suspect]
     Active Substance: RAVULIZUMAB-CWVZ
  2. DANICOPAN [Suspect]
     Active Substance: DANICOPAN
     Route: 065

REACTIONS (2)
  - Immunodeficiency [Unknown]
  - Asthenia [Unknown]
